FAERS Safety Report 5358617-6 (Version None)
Quarter: 2007Q2

REPORT INFORMATION
  Report Type: 
  Country: None (occurrence: None)
  Receive Date: 20070601
  Receipt Date: 20070207
  Transmission Date: 20071010
  Serious: No
  Sender: FDA-Public Use
  Company Number: PHEH2007US01786

PATIENT
  Age: 77 Year
  Sex: Male

DRUGS (1)
  1. ENABLEX [Suspect]
     Indication: HYPERTONIC BLADDER
     Dosage: 7.5 MG, QD
     Dates: start: 20070101, end: 20070206

REACTIONS (2)
  - ANOREXIA [None]
  - DYSPEPSIA [None]
